FAERS Safety Report 10201576 (Version 1)
Quarter: 2014Q2

REPORT INFORMATION
  Report Type: Spontaneous
  Country: FR (occurrence: FR)
  Receive Date: 20140528
  Receipt Date: 20140528
  Transmission Date: 20141212
  Serious: Yes (Other)
  Sender: FDA-Public Use
  Company Number: FR-SA-2014SA063449

PATIENT
  Age: 69 Year
  Sex: Male

DRUGS (7)
  1. LASILIX [Suspect]
     Indication: PRODUCT USED FOR UNKNOWN INDICATION
     Route: 048
     Dates: start: 20140331
  2. HYDROCHLOROTHIAZIDE\NEBIVOLOL HYDROCHLORIDE [Suspect]
     Indication: PRODUCT USED FOR UNKNOWN INDICATION
     Route: 048
     Dates: start: 20140331, end: 20140411
  3. PROZAC [Suspect]
     Indication: PRODUCT USED FOR UNKNOWN INDICATION
     Route: 048
     Dates: start: 201404, end: 20140411
  4. KARDEGIC [Concomitant]
  5. EUPANTOL [Concomitant]
  6. IXPRIM [Concomitant]
  7. EUPRESSYL [Concomitant]

REACTIONS (2)
  - Malaise [Recovering/Resolving]
  - Electrocardiogram QT prolonged [Recovering/Resolving]
